FAERS Safety Report 8407445-3 (Version None)
Quarter: 2012Q2

REPORT INFORMATION
  Report Type: 
  Country: None (occurrence: None)
  Receive Date: 20120604
  Receipt Date: 20120528
  Transmission Date: 20120825
  Serious: Yes (Hospitalization, Disabling)
  Sender: FDA-Public Use
  Company Number: CA-B.I. PHARMACEUTICALS,INC./RIDGEFIELD-2012-CN-01109CN

PATIENT
  Age: 60 Year
  Sex: Female

DRUGS (2)
  1. OTHER CARDIAC MEDICATIONS [Concomitant]
     Indication: CARDIAC DISORDER
  2. PRADAXA [Suspect]
     Indication: ANTICOAGULANT THERAPY
     Dates: start: 20110101, end: 20120331

REACTIONS (4)
  - HEMIANOPIA [None]
  - ISCHAEMIC STROKE [None]
  - HEMISENSORY NEGLECT [None]
  - HEMIPLEGIA [None]
